FAERS Safety Report 15130320 (Version 1)
Quarter: 2018Q3

REPORT INFORMATION
  Report Type: Spontaneous
  Country: FR (occurrence: FR)
  Receive Date: 20180711
  Receipt Date: 20180711
  Transmission Date: 20181010
  Serious: Yes (Hospitalization)
  Sender: FDA-Public Use
  Company Number: FR-PFIZER INC-2018273484

PATIENT
  Sex: Female

DRUGS (2)
  1. XANAX [Suspect]
     Active Substance: ALPRAZOLAM
     Dosage: 5 MG, 1X/DAY
     Route: 048
     Dates: start: 1992
  2. SKENAN [Suspect]
     Active Substance: MORPHINE SULFATE
     Dosage: 150 MG, 1X/DAY
     Route: 042
     Dates: start: 1994, end: 20180213

REACTIONS (3)
  - Drug diversion [Recovering/Resolving]
  - Drug detoxification [Recovering/Resolving]
  - Drug dependence [Recovering/Resolving]

NARRATIVE: CASE EVENT DATE: 1994
